FAERS Safety Report 15442349 (Version 1)
Quarter: 2018Q3

REPORT INFORMATION
  Report Type: Spontaneous
  Country: IR (occurrence: IR)
  Receive Date: 20180928
  Receipt Date: 20180928
  Transmission Date: 20181010
  Serious: Yes (Other)
  Sender: FDA-Public Use
  Company Number: IR-SA-2018SA176543

PATIENT
  Age: 66 Year
  Sex: Female

DRUGS (2)
  1. LAMOTRIGINE. [Concomitant]
     Active Substance: LAMOTRIGINE
     Indication: EPILEPSY
     Dosage: 1/4 TABLET PER DAY
     Route: 048
  2. PLAVIX [Suspect]
     Active Substance: CLOPIDOGREL BISULFATE
     Indication: AMNESIA
     Dosage: 1 DF, QD
     Route: 048

REACTIONS (7)
  - Rash macular [Recovering/Resolving]
  - Ecchymosis [Recovering/Resolving]
  - Epilepsy [Unknown]
  - Ear congestion [Recovered/Resolved]
  - Cerebral congestion [Recovered/Resolved]
  - Infection parasitic [Unknown]
  - Carotid bruit [Unknown]
